FAERS Safety Report 7536273-6 (Version None)
Quarter: 2011Q2

REPORT INFORMATION
  Report Type: 
  Country: None (occurrence: None)
  Receive Date: 20110608
  Receipt Date: 20110608
  Transmission Date: 20111010
  Serious: Yes (Other)
  Sender: FDA-Public Use
  Company Number: None

PATIENT
  Age: 83 Year
  Sex: 0
  Weight: 70.3075 kg

DRUGS (1)
  1. LANTISEPTIC SKIN PROTECTANT 50% LANOLIN ACTIVE INGREDIENT [Suspect]
     Indication: INCONTINENCE
     Dosage: NON-DOSAGE SPECIFIED AS NEEDED TOP
     Route: 061
     Dates: start: 20110605, end: 20110606

REACTIONS (1)
  - APPLICATION SITE VESICLES [None]
